FAERS Safety Report 5618204-9 (Version None)
Quarter: 2008Q1

REPORT INFORMATION
  Report Type: 
  Country: None (occurrence: None)
  Receive Date: 20080207
  Receipt Date: 20071211
  Transmission Date: 20080703
  Serious: No
  Sender: FDA-Public Use
  Company Number: A0698324A

PATIENT
  Age: 22 Year
  Sex: Female

DRUGS (3)
  1. PAROXETINE [Suspect]
     Dosage: 40MG PER DAY
     Route: 048
     Dates: start: 19991201
  2. ZOVIA 1/35E-21 [Concomitant]
  3. CONCERTA [Concomitant]

REACTIONS (5)
  - ASTHENIA [None]
  - DIARRHOEA [None]
  - INFLUENZA LIKE ILLNESS [None]
  - NAUSEA [None]
  - VOMITING [None]
